FAERS Safety Report 25013869 (Version 2)
Quarter: 2025Q1

REPORT INFORMATION
  Report Type: Spontaneous
  Country: IE (occurrence: IE)
  Receive Date: 20250226
  Receipt Date: 20250315
  Transmission Date: 20250409
  Serious: Yes (Other)
  Sender: AUROBINDO
  Company Number: IE-ASTRAZENECA-202501EEA021250IE

PATIENT
  Age: 67 Year
  Sex: Female

DRUGS (10)
  1. DEFERASIROX [Suspect]
     Active Substance: DEFERASIROX
     Indication: Iron overload
     Dosage: 1080 MILLIGRAM, ONCE A DAY (1080 MILLIGRAM, QD)
     Route: 065
  2. SOLIRIS [Suspect]
     Active Substance: ECULIZUMAB
     Indication: Paroxysmal nocturnal haemoglobinuria
     Route: 042
     Dates: start: 20150610
  3. AMOXICILLIN [Concomitant]
     Active Substance: AMOXICILLIN
     Indication: Product used for unknown indication
     Dosage: 1500 MILLIGRAM, ONCE A DAY (500 MILLIGRAM, TID)
     Route: 050
  4. AUGMENTIN [Concomitant]
     Active Substance: AMOXICILLIN\CLAVULANATE POTASSIUM
     Indication: Product used for unknown indication
     Dosage: 1875 MILLIGRAM, ONCE A DAY (625 MILLIGRAM, TID)
     Route: 050
  5. Calvepen [Concomitant]
     Indication: Product used for unknown indication
     Dosage: 1000 MILLIGRAM, ONCE A DAY (500 MILLIGRAM, BID)
     Route: 050
  6. ENOXAPARIN SODIUM [Concomitant]
     Active Substance: ENOXAPARIN SODIUM
     Indication: Product used for unknown indication
     Dosage: 20 MILLIGRAM, ONCE A DAY (20 MILLIGRAM, QD)
     Route: 050
  7. Ferrum [Concomitant]
     Indication: Product used for unknown indication
     Route: 065
  8. FOLIC ACID [Concomitant]
     Active Substance: FOLIC ACID
     Indication: Product used for unknown indication
     Dosage: 5 MILLIGRAM, ONCE A DAY (5 MILLIGRAM, QD)
     Route: 050
  9. FOLIC ACID [Concomitant]
     Active Substance: FOLIC ACID
     Route: 065
  10. SERETIDE [Concomitant]
     Active Substance: FLUTICASONE PROPIONATE\SALMETEROL XINAFOATE
     Indication: Product used for unknown indication
     Route: 065

REACTIONS (5)
  - Lower respiratory tract infection [Recovering/Resolving]
  - Iron overload [Not Recovered/Not Resolved]
  - Rash [Not Recovered/Not Resolved]
  - Haemoglobin decreased [Unknown]
  - Urinary tract infection [Recovering/Resolving]

NARRATIVE: CASE EVENT DATE: 20250122
